FAERS Safety Report 5328012-4 (Version None)
Quarter: 2007Q2

REPORT INFORMATION
  Report Type: 
  Country: None (occurrence: None)
  Receive Date: 20070517
  Receipt Date: 20070507
  Transmission Date: 20071010
  Serious: Yes (Other)
  Sender: FDA-Public Use
  Company Number: GB-ABBOTT-07P-167-0365052-00

PATIENT
  Sex: Female

DRUGS (3)
  1. EPILIM TABLETS [Suspect]
     Indication: POSTICTAL PARALYSIS
     Route: 048
     Dates: start: 20070118
  2. DIPYRIDAMOLE [Concomitant]
     Indication: DRUG USE FOR UNKNOWN INDICATION
  3. FUROSEMIDE [Concomitant]
     Indication: DRUG USE FOR UNKNOWN INDICATION
     Route: 065
     Dates: start: 20070413

REACTIONS (8)
  - CELLULITIS [None]
  - CONVULSION [None]
  - ERYTHEMA [None]
  - ERYTHEMA OF EYELID [None]
  - EYELID PAIN [None]
  - FACIAL PAIN [None]
  - LOCALISED INFECTION [None]
  - PRURITUS [None]
